FAERS Safety Report 18739687 (Version 2)
Quarter: 2021Q2

REPORT INFORMATION
  Report Type: Report from Study
  Country: US (occurrence: US)
  Receive Date: 20210114
  Receipt Date: 20210430
  Transmission Date: 20210717
  Serious: Yes (Hospitalization)
  Sender: FDA-Public Use
  Company Number: US-DOVA PHARMACEUTICALS INC.-DOV-000804

PATIENT
  Age: 73 Year
  Sex: Male

DRUGS (1)
  1. DOPTELET [Suspect]
     Active Substance: AVATROMBOPAG MALEATE
     Indication: IMMUNE THROMBOCYTOPENIA
     Dosage: 20 MILLIGRAM, QD
     Route: 048
     Dates: start: 20200207

REACTIONS (4)
  - Platelet count increased [Not Recovered/Not Resolved]
  - Dyspnoea [Unknown]
  - Hip fracture [Unknown]
  - Complication associated with device [Unknown]

NARRATIVE: CASE EVENT DATE: 202012
